FAERS Safety Report 7311748-3 (Version None)
Quarter: 2011Q1

REPORT INFORMATION
  Report Type: 
  Country: None (occurrence: None)
  Receive Date: 20110224
  Receipt Date: 20110217
  Transmission Date: 20110831
  Serious: Yes (Hospitalization, Other)
  Sender: FDA-Public Use
  Company Number: US-GENZYME-MOZO-1000470

PATIENT
  Sex: Male

DRUGS (5)
  1. SORAFENIB [Suspect]
     Indication: MYELOID LEUKAEMIA
     Dosage: 400 MG, BID
     Route: 048
  2. SORAFENIB [Suspect]
     Dosage: 400 MG, QD
     Route: 048
     Dates: start: 20110202
  3. SORAFENIB [Suspect]
     Dosage: 400 MG, QOD
     Route: 048
     Dates: start: 20110126
  4. NEUPOGEN [Suspect]
     Indication: MYELOID LEUKAEMIA
     Dosage: 10 MCG/KG, QD
     Route: 058
  5. MOZOBIL [Suspect]
     Indication: MYELOID LEUKAEMIA
     Dosage: 240 MCG/KG, QD
     Route: 058

REACTIONS (3)
  - RENAL FAILURE [None]
  - PALMAR-PLANTAR ERYTHRODYSAESTHESIA SYNDROME [None]
  - HYPOTENSION [None]
